FAERS Safety Report 19358724 (Version 3)
Quarter: 2021Q2

REPORT INFORMATION
  Report Type: Report from Study
  Country: ES (occurrence: ES)
  Receive Date: 20210601
  Receipt Date: 20210611
  Transmission Date: 20210717
  Serious: Yes (Hospitalization)
  Sender: FDA-Public Use
  Company Number: NVSC2021ES117948

PATIENT
  Age: 60 Year
  Sex: Female
  Weight: 71 kg

DRUGS (27)
  1. FENTANYL. [Concomitant]
     Active Substance: FENTANYL
     Indication: PAIN
     Dosage: 12 MCG/H AND 25 MCG/H
     Route: 065
     Dates: start: 20210429
  2. PARACETAMOL [Concomitant]
     Active Substance: ACETAMINOPHEN
     Indication: CHEST PAIN
     Dosage: UNK
     Route: 065
     Dates: start: 20210429
  3. PROLIA [Concomitant]
     Active Substance: DENOSUMAB
     Indication: OSTEOPOROSIS
     Dosage: UNK
     Route: 065
     Dates: start: 20190819
  4. LEVOTIROXINA [Concomitant]
     Dosage: UNK
     Route: 065
     Dates: start: 20210503
  5. FLUTOX [Concomitant]
     Indication: COUGH
     Dosage: 3.54 MG/ML
     Route: 065
     Dates: start: 20210503
  6. OMEPRAZOL [Concomitant]
     Active Substance: OMEPRAZOLE
     Indication: PROPHYLAXIS
     Dosage: UNK
     Route: 065
     Dates: start: 20200619
  7. SULPIRIDA [Concomitant]
     Active Substance: SULPIRIDE
     Indication: DIZZINESS
     Dosage: 50 MG
     Route: 065
     Dates: start: 20210522, end: 20210522
  8. FORTASEC [Concomitant]
     Active Substance: LOPERAMIDE HYDROCHLORIDE
     Indication: DIARRHOEA
     Dosage: UNK
     Route: 065
     Dates: start: 20210429, end: 20210511
  9. ABSTRAL [Concomitant]
     Active Substance: FENTANYL CITRATE
     Indication: PAIN
     Dosage: UNK
     Route: 065
     Dates: start: 20210429
  10. JANUVIA [Concomitant]
     Active Substance: SITAGLIPTIN PHOSPHATE
     Indication: HYPERGLYCAEMIA
     Dosage: UNK
     Route: 065
     Dates: start: 20210520
  11. NATECAL D [Concomitant]
     Active Substance: CALCIUM CARBONATE\CHOLECALCIFEROL
     Indication: SUPPLEMENTATION THERAPY
     Dosage: UNK
     Route: 065
     Dates: start: 20190722
  12. LEVOTIROXINA [Concomitant]
     Indication: HYPOTHYROIDISM
     Dosage: 25 MCG
     Route: 065
     Dates: start: 20210429, end: 20210502
  13. KYTRIL [Concomitant]
     Active Substance: GRANISETRON HYDROCHLORIDE
     Indication: PROPHYLAXIS OF NAUSEA AND VOMITING
     Dosage: 1 MG
     Route: 065
     Dates: start: 20210429
  14. BISOPROLOL [Concomitant]
     Active Substance: BISOPROLOL
     Indication: HYPERTENSION
     Dosage: UNK
     Route: 065
     Dates: start: 20210524
  15. GRANISETRON [Concomitant]
     Active Substance: GRANISETRON
     Indication: DIZZINESS
     Dosage: 1 MG
     Route: 065
     Dates: start: 20210522, end: 20210522
  16. FORTASEC [Concomitant]
     Active Substance: LOPERAMIDE HYDROCHLORIDE
     Dosage: UNK
     Route: 065
     Dates: start: 20210519, end: 20210526
  17. METFORMINA [Concomitant]
     Active Substance: METFORMIN HYDROCHLORIDE
     Indication: HYPERGLYCAEMIA
     Dosage: UNK
     Route: 065
     Dates: start: 20210429, end: 20210519
  18. CLOPERASTINE [Concomitant]
     Active Substance: CLOPERASTINE
     Indication: COUGH
     Dosage: UNK
     Route: 065
     Dates: start: 20210503
  19. LORAZEPAM. [Concomitant]
     Active Substance: LORAZEPAM
     Indication: ANXIETY
     Dosage: UNK
     Route: 065
     Dates: start: 20201117
  20. ALPELISIB [Suspect]
     Active Substance: ALPELISIB
     Indication: BREAST CANCER
     Dosage: UNK
     Route: 048
     Dates: start: 20210426
  21. BUPRENORPHINE. [Concomitant]
     Active Substance: BUPRENORPHINE
     Indication: PAIN
     Dosage: UNK
     Route: 065
     Dates: start: 20200717
  22. DOLOCATIL [Concomitant]
     Active Substance: ACETAMINOPHEN
     Indication: PAIN
     Dosage: UNK
     Route: 065
     Dates: start: 20210326
  23. IRON PROTEINSUCCINYLATE [Concomitant]
     Indication: ANAEMIA
     Dosage: UNK
     Route: 065
     Dates: start: 20210416
  24. EMEND [Concomitant]
     Active Substance: APREPITANT
     Indication: ILLNESS
     Dosage: 125 MG
     Route: 065
     Dates: start: 20210526, end: 20210526
  25. EMEND [Concomitant]
     Active Substance: APREPITANT
     Dosage: 80 MG
     Route: 065
     Dates: start: 20210527, end: 20210528
  26. DOMPERIDONA [Concomitant]
     Active Substance: DOMPERIDONE
     Indication: ILLNESS
     Dosage: UNK
     Route: 065
     Dates: start: 20210503
  27. COMPARATOR NAB?PACLITAXEL [Suspect]
     Active Substance: PACLITAXEL
     Indication: BREAST CANCER
     Dosage: UNK
     Route: 042
     Dates: start: 20210426

REACTIONS (1)
  - Hypokalaemia [Recovered/Resolved]

NARRATIVE: CASE EVENT DATE: 20210522
